FAERS Safety Report 5465555-7 (Version None)
Quarter: 2007Q3

REPORT INFORMATION
  Report Type: 
  Country: None (occurrence: None)
  Receive Date: 20070919
  Receipt Date: 20070912
  Transmission Date: 20080115
  Serious: Yes (Life-Threatening, Hospitalization)
  Sender: FDA-Public Use
  Company Number: TCI2007A03529

PATIENT
  Age: 83 Year
  Sex: Female

DRUGS (13)
  1. ACTOS [Suspect]
     Indication: DIABETES MELLITUS
     Dosage: 15MG (15 MG, 1 -2), PER ORAL;  15 MG (15 MG, 1 IN 1 D); 30 MG (30 MG, 1  IN 1 D) PER ORAL
     Route: 048
     Dates: start: 20070221, end: 20070227
  2. ACTOS [Suspect]
     Indication: DIABETES MELLITUS
     Dosage: 15MG (15 MG, 1 -2), PER ORAL;  15 MG (15 MG, 1 IN 1 D); 30 MG (30 MG, 1  IN 1 D) PER ORAL
     Route: 048
     Dates: start: 20070228, end: 20070302
  3. ACTOS [Suspect]
     Indication: DIABETES MELLITUS
     Dosage: 15MG (15 MG, 1 -2), PER ORAL;  15 MG (15 MG, 1 IN 1 D); 30 MG (30 MG, 1  IN 1 D) PER ORAL
     Route: 048
     Dates: start: 20070303, end: 20070403
  4. ACTOS [Suspect]
     Indication: DIABETES MELLITUS
     Dosage: 15MG (15 MG, 1 -2), PER ORAL;  15 MG (15 MG, 1 IN 1 D); 30 MG (30 MG, 1  IN 1 D) PER ORAL
     Route: 048
     Dates: start: 20070717, end: 20070717
  5. BASEN OD TABLETS 0.3 (VOGLIBOSE) [Suspect]
     Dosage: 0.9 MG (0.3 MG, 3 IN 1 D) PER ORAL
     Route: 048
     Dates: start: 20060808, end: 20070810
  6. NATEGLINIDE [Concomitant]
  7. COLCHICUM JTL LIQ [Concomitant]
  8. ALFAROL (ALFACALCIDOL) [Concomitant]
  9. ASPARA-CA (ASPARTATE CALCIUM) [Concomitant]
  10. FAMOTIDINE [Concomitant]
  11. SELBEX (TEPRENONE) [Concomitant]
  12. LOXONIN (LOXOPROFEN SODIUM) [Concomitant]
  13. LASIX [Concomitant]

REACTIONS (9)
  - ANAPHYLACTIC SHOCK [None]
  - BLOOD GLUCOSE INCREASED [None]
  - CHEST DISCOMFORT [None]
  - DIZZINESS [None]
  - DYSPNOEA [None]
  - GLYCOSYLATED HAEMOGLOBIN INCREASED [None]
  - IMMOBILE [None]
  - PRURITUS GENITAL [None]
  - SWELLING [None]
